FAERS Safety Report 4352849-1 (Version None)
Quarter: 2004Q2

REPORT INFORMATION
  Report Type: 
  Country: None (occurrence: None)
  Receive Date: 20040429
  Receipt Date: 20040426
  Transmission Date: 20050107
  Serious: Yes (Death)
  Sender: FDA-Public Use
  Company Number: 04USA0021

PATIENT
  Age: 66 Year
  Sex: Male

DRUGS (5)
  1. GLIADEL [Suspect]
     Indication: GLIOBLASTOMA MULTIFORME
     Dates: start: 20040414, end: 20040424
  2. GENTAMICIN SULFATE [Concomitant]
  3. DEXAMETHASONE [Concomitant]
  4. PHENYTOIN SODIUM [Concomitant]
  5. FAMOTIDINE [Concomitant]

REACTIONS (6)
  - BRAIN OEDEMA [None]
  - DECEREBRATION [None]
  - POST PROCEDURAL COMPLICATION [None]
  - PUPIL FIXED [None]
  - PUPILS UNEQUAL [None]
  - SUBDURAL HAEMATOMA [None]
